FAERS Safety Report 12940303 (Version 1)
Quarter: 2016Q4

REPORT INFORMATION
  Report Type: Spontaneous
  Country: US (occurrence: US)
  Receive Date: 20161115
  Receipt Date: 20161115
  Transmission Date: 20170207
  Serious: Yes (Other)
  Sender: FDA-Public Use
  Company Number: None

PATIENT
  Age: 7 Year
  Sex: Male
  Weight: 24.75 kg

DRUGS (1)
  1. CHLORASEPTIC SORE THROAT LIQUID CENTER (BENZOCAINE\MENTHOL) [Suspect]
     Active Substance: BENZOCAINE\MENTHOL
     Indication: OROPHARYNGEAL PAIN
     Dosage: ?          QUANTITY:18 CAPSULE(S);?
     Route: 048
     Dates: start: 20161114, end: 20161114

REACTIONS (6)
  - Anaphylactic shock [None]
  - Feeling hot [None]
  - Epistaxis [None]
  - Hypoaesthesia [None]
  - Vomiting [None]
  - Tremor [None]

NARRATIVE: CASE EVENT DATE: 20161114
